FAERS Safety Report 14347135 (Version 1)
Quarter: 2018Q1

REPORT INFORMATION
  Report Type: Spontaneous
  Country: US (occurrence: US)
  Receive Date: 20180103
  Receipt Date: 20180103
  Transmission Date: 20180509
  Serious: Yes (Hospitalization, Other)
  Sender: FDA-Public Use
  Company Number: US-PURDUE-USA-2017-0142243

PATIENT
  Sex: Female

DRUGS (5)
  1. COLACE [Suspect]
     Active Substance: DOCUSATE SODIUM
     Indication: UNEVALUABLE EVENT
     Route: 048
  2. CALCIUM + VITAMIN D [Concomitant]
     Active Substance: CALCIUM\VITAMIN D
     Indication: OSTEOPOROSIS PROPHYLAXIS
     Route: 065
  3. PLAVIX [Concomitant]
     Active Substance: CLOPIDOGREL BISULFATE
     Indication: PRODUCT USED FOR UNKNOWN INDICATION
     Route: 065
  4. CLARITIN [Concomitant]
     Active Substance: LORATADINE
     Indication: HYPERSENSITIVITY
     Dosage: UNK, PRN
     Route: 048
  5. ASPIRIN. [Concomitant]
     Active Substance: ASPIRIN
     Indication: PRODUCT USED FOR UNKNOWN INDICATION
     Dosage: 81 MG, AC
     Route: 048

REACTIONS (4)
  - Urinary incontinence [Unknown]
  - Stent placement [Unknown]
  - Urinary tract infection [Recovered/Resolved]
  - Cardiac disorder [Unknown]
